FAERS Safety Report 22184903 (Version 4)
Quarter: 2023Q2

REPORT INFORMATION
  Report Type: Spontaneous
  Country: TR (occurrence: TR)
  Receive Date: 20230407
  Receipt Date: 20230524
  Transmission Date: 20230721
  Serious: Yes (Other)
  Sender: FDA-Public Use
  Company Number: TR-002147023-NVSC2023TR075896

PATIENT
  Age: 70 Year
  Sex: Female
  Weight: 80 kg

DRUGS (2)
  1. ALPELISIB [Suspect]
     Active Substance: ALPELISIB
     Indication: Metastatic neoplasm
     Dosage: 300 MG
     Route: 048
     Dates: start: 20230106
  2. FASLODEX [Suspect]
     Active Substance: FULVESTRANT
     Indication: Metastatic neoplasm
     Dosage: 500 MG (ONCE IN 28 DAYS) (2X250 MG)
     Route: 030
     Dates: start: 20230106, end: 20230311

REACTIONS (6)
  - Epilepsy [Recovered/Resolved]
  - Confusional state [Unknown]
  - Hallucination [Recovering/Resolving]
  - Syncope [Recovering/Resolving]
  - Generalised tonic-clonic seizure [Recovered/Resolved]
  - Off label use [Unknown]

NARRATIVE: CASE EVENT DATE: 20230330
